FAERS Safety Report 9340373 (Version 2)
Quarter: 2013Q3

REPORT INFORMATION
  Report Type: Report from Study
  Country: US (occurrence: US)
  Receive Date: 20130610
  Receipt Date: 20130705
  Transmission Date: 20140515
  Serious: Yes (Hospitalization)
  Sender: FDA-Public Use
  Company Number: US-PURDUE-USA-2013-0103002

PATIENT
  Age: 58 Year
  Sex: Female

DRUGS (7)
  1. OXYCONTIN (NDA 22-272) [Suspect]
     Indication: PAIN
     Dosage: 80 MG, BID
     Route: 048
     Dates: start: 2001
  2. OXYCONTIN (NDA 22-272) [Suspect]
     Dosage: 40 MG, BID
     Route: 048
  3. ROXICODONE [Suspect]
     Indication: PAIN
     Dosage: 30 MG, QID
     Dates: start: 2004
  4. ROXICODONE [Suspect]
     Dosage: 15 MG, QID
  5. VALIUM /00017001/ [Suspect]
     Indication: ANXIETY DISORDER
     Dosage: 10 MG, QID
     Dates: start: 20090317
  6. VALIUM /00017001/ [Suspect]
     Indication: PANIC ATTACK
     Dosage: 10 MG, 1/2 QID
  7. ADVAIR [Concomitant]
     Indication: ASTHMA
     Route: 055

REACTIONS (2)
  - Asthma [Recovered/Resolved]
  - Respiratory failure [Recovered/Resolved]
